FAERS Safety Report 4587944-5 (Version None)
Quarter: 2005Q1

REPORT INFORMATION
  Report Type: 
  Country: None (occurrence: None)
  Receive Date: 20050215
  Receipt Date: 20050202
  Transmission Date: 20050727
  Serious: Yes (Hospitalization)
  Sender: FDA-Public Use
  Company Number: 2005-UK-00187UK

PATIENT
  Age: 10 Year
  Sex: Male

DRUGS (3)
  1. ATROVENT [Suspect]
     Indication: STATUS ASTHMATICUS
     Dosage: 500 MCG IH
     Route: 055
     Dates: start: 20040419
  2. SALBUTAMOL (SALBUTAMOL) [Concomitant]
  3. ORAL STEROIDS [Concomitant]

REACTIONS (2)
  - ACCIDENTAL EXPOSURE [None]
  - MYDRIASIS [None]
